FAERS Safety Report 11193307 (Version 1)
Quarter: 2015Q2

REPORT INFORMATION
  Report Type: Spontaneous
  Country: IT (occurrence: IT)
  Receive Date: 20150616
  Receipt Date: 20150616
  Transmission Date: 20150821
  Serious: Yes (Life-Threatening)
  Sender: FDA-Public Use
  Company Number: IT-HOSPIRA-2633557

PATIENT
  Age: 55 Year
  Sex: Female

DRUGS (3)
  1. IMATINIB [Concomitant]
     Active Substance: IMATINIB
     Indication: PRODUCT USED FOR UNKNOWN INDICATION
     Route: 048
     Dates: start: 20091130, end: 20100121
  2. CYTARABINE. [Suspect]
     Active Substance: CYTARABINE
     Indication: LYMPHOPROLIFERATIVE DISORDER
     Dosage: DAILY
     Route: 042
     Dates: start: 20091205, end: 20091209
  3. IDARUBICIN [Suspect]
     Active Substance: IDARUBICIN
     Indication: LYMPHOPROLIFERATIVE DISORDER
     Route: 042
     Dates: start: 20091207, end: 20091207

REACTIONS (2)
  - Septic shock [Recovered/Resolved]
  - Febrile neutropenia [Recovered/Resolved]

NARRATIVE: CASE EVENT DATE: 20091212
